FAERS Safety Report 15261984 (Version 1)
Quarter: 2018Q3

REPORT INFORMATION
  Report Type: Spontaneous
  Country: ES (occurrence: ES)
  Receive Date: 20180809
  Receipt Date: 20180809
  Transmission Date: 20181010
  Serious: Yes (Life-Threatening, Hospitalization)
  Sender: FDA-Public Use
  Company Number: ES-PFIZER INC-2018317640

PATIENT
  Age: 81 Year
  Sex: Male

DRUGS (2)
  1. METRONIDAZOLE. [Suspect]
     Active Substance: METRONIDAZOLE
     Indication: HELICOBACTER INFECTION
     Dosage: 500 MG, 2X/DAY (EACH 12H)
     Route: 048
     Dates: start: 20180530, end: 20180605
  2. METHOTREXATE SODIUM. [Suspect]
     Active Substance: METHOTREXATE SODIUM
     Dosage: 5 MG, 2X/DAY (EACH 12H)
     Route: 048
     Dates: start: 20180530, end: 20180605

REACTIONS (5)
  - Oesophageal candidiasis [Recovered/Resolved]
  - Pancytopenia [Recovered/Resolved]
  - Drug dispensing error [Recovered/Resolved]
  - Oral candidiasis [Recovered/Resolved]
  - Hypoprothrombinaemia [Recovered/Resolved]

NARRATIVE: CASE EVENT DATE: 20180530
